FAERS Safety Report 23061655 (Version 2)
Quarter: 2023Q4

REPORT INFORMATION
  Report Type: Other
  Country: US (occurrence: None)
  Receive Date: 20231013
  Receipt Date: 20231016
  Transmission Date: 20240110
  Serious: Yes (Other)
  Sender: FDA-Public Use
  Company Number: US-ROCHE-3432635

PATIENT
  Age: 66 Year
  Sex: Male

DRUGS (1)
  1. OCREVUS [Suspect]
     Active Substance: OCRELIZUMAB
     Indication: Multiple sclerosis
     Dosage: THEN INFUSE 600MG INTRAVENOUSLY EVERY 6 MONTH ON 06/APR/2023, HE RECEIVED THE MOST RECENT DOSE OF OC
     Route: 042
     Dates: start: 2019

REACTIONS (1)
  - Cystitis [Not Recovered/Not Resolved]

NARRATIVE: CASE EVENT DATE: 20230925
